FAERS Safety Report 6328328-9 (Version None)
Quarter: 2009Q3

REPORT INFORMATION
  Report Type: 
  Country: None (occurrence: None)
  Receive Date: 20090825
  Receipt Date: 20090420
  Transmission Date: 20100115
  Serious: No
  Sender: FDA-Public Use
  Company Number: US-ABBOTT-09P-163-0569556-00

PATIENT
  Sex: Female
  Weight: 90.8 kg

DRUGS (2)
  1. SYNTHROID [Suspect]
     Indication: HYPOTHYROIDISM
     Dates: start: 20010101, end: 20090403
  2. ZANTAC [Concomitant]
     Indication: GASTROOESOPHAGEAL REFLUX DISEASE

REACTIONS (9)
  - BLOOD THYROID STIMULATING HORMONE INCREASED [None]
  - CHOKING [None]
  - FATIGUE [None]
  - FEELING ABNORMAL [None]
  - LOCAL SWELLING [None]
  - MALAISE [None]
  - NERVOUSNESS [None]
  - PALPITATIONS [None]
  - THROAT TIGHTNESS [None]
